FAERS Safety Report 15061989 (Version 1)
Quarter: 2018Q2

REPORT INFORMATION
  Report Type: Spontaneous
  Country: US (occurrence: US)
  Receive Date: 20180605
  Receipt Date: 20180605
  Transmission Date: 20180711
  Serious: Yes (Disabling)
  Sender: FDA-Public Use
  Company Number: None

PATIENT
  Age: 65 Year
  Sex: Female
  Weight: 57.6 kg

DRUGS (7)
  1. XANAX [Concomitant]
     Active Substance: ALPRAZOLAM
  2. MULTI VITAMIN [Concomitant]
     Active Substance: VITAMINS
  3. GINKO BILOBA [Concomitant]
     Active Substance: GINKGO
  4. VITAMIN C [Concomitant]
     Active Substance: ASCORBIC ACID
  5. ZINC. [Concomitant]
     Active Substance: ZINC
  6. KETOROLAC TROMETHAMINE OPTHALMIC SOLUTION 0.4% [Suspect]
     Active Substance: KETOROLAC TROMETHAMINE
     Indication: CATARACT OPERATION
     Dosage: ?          QUANTITY:1 DROP(S);OTHER FREQUENCY:AS DIRECTED;?
     Route: 030
     Dates: start: 20180407, end: 20180515
  7. VITAMIN D [Concomitant]
     Active Substance: CHOLECALCIFEROL

REACTIONS (1)
  - Tinnitus [None]

NARRATIVE: CASE EVENT DATE: 20180413
